FAERS Safety Report 19397882 (Version 2)
Quarter: 2022Q1

REPORT INFORMATION
  Report Type: Spontaneous
  Country: US (occurrence: US)
  Receive Date: 20210610
  Receipt Date: 20220215
  Transmission Date: 20220423
  Serious: Yes (Other)
  Sender: FDA-Public Use
  Company Number: US-GILEAD-2021-0534844

PATIENT
  Sex: Male
  Weight: 79.365 kg

DRUGS (32)
  1. ATRIPLA [Suspect]
     Active Substance: EFAVIRENZ\EMTRICITABINE\TENOFOVIR DISOPROXIL FUMARATE
     Indication: HIV infection
     Dosage: UNK
     Route: 048
     Dates: start: 2007
  2. ATRIPLA [Suspect]
     Active Substance: EFAVIRENZ\EMTRICITABINE\TENOFOVIR DISOPROXIL FUMARATE
     Dosage: UNK
     Route: 048
     Dates: start: 200804, end: 201910
  3. JULUCA [Concomitant]
     Active Substance: DOLUTEGRAVIR SODIUM\RILPIVIRINE HYDROCHLORIDE
  4. TRIZIVIR [Concomitant]
     Active Substance: ABACAVIR SULFATE\LAMIVUDINE\ZIDOVUDINE
  5. VIRACEPT [Concomitant]
     Active Substance: NELFINAVIR MESYLATE
  6. ACYCLOVIR [Concomitant]
     Active Substance: ACYCLOVIR
  7. ALBUTEROL SULFATE [Concomitant]
     Active Substance: ALBUTEROL SULFATE
  8. BUPROPION [Concomitant]
     Active Substance: BUPROPION
  9. BUPROPION HYDROCHLORIDE [Concomitant]
     Active Substance: BUPROPION HYDROCHLORIDE
  10. CETIRIZINE [Concomitant]
     Active Substance: CETIRIZINE HYDROCHLORIDE
  11. CYCLOBENZAPRINE [Concomitant]
     Active Substance: CYCLOBENZAPRINE
  12. DEPO-TESTOSTERONE [Concomitant]
     Active Substance: TESTOSTERONE CYPIONATE
  13. MOMETASONE FUROATE [Concomitant]
     Active Substance: MOMETASONE FUROATE
  14. HYDROCORTISONE [Concomitant]
     Active Substance: HYDROCORTISONE
  15. HYDROCORTISONE AND ACETIC ACID [Concomitant]
     Active Substance: ACETIC ACID\HYDROCORTISONE
  16. KETOCONAZOLE [Concomitant]
     Active Substance: KETOCONAZOLE
  17. MONTELUKAST [Concomitant]
     Active Substance: MONTELUKAST SODIUM
  18. NALTREXONE [Concomitant]
     Active Substance: NALTREXONE
  19. NEOMYCIN AND POLYMYXIN B SULFATES AND HYDROCORTISONE [Concomitant]
     Active Substance: HYDROCORTISONE\NEOMYCIN SULFATE\POLYMYXIN B SULFATE
  20. PATADAY [Concomitant]
     Active Substance: OLOPATADINE HYDROCHLORIDE
  21. PATANOL [Concomitant]
     Active Substance: OLOPATADINE HYDROCHLORIDE
  22. PHENTERMINE [Concomitant]
     Active Substance: PHENTERMINE
  23. PREDNISONE [Concomitant]
     Active Substance: PREDNISONE
  24. MINERALS\VITAMINS [Concomitant]
     Active Substance: MINERALS\VITAMINS
  25. PROAIR HFA [Concomitant]
     Active Substance: ALBUTEROL SULFATE
  26. SINGULAIR [Concomitant]
     Active Substance: MONTELUKAST SODIUM
  27. SYNTHROID [Concomitant]
     Active Substance: LEVOTHYROXINE SODIUM
  28. TESTOSTERONE CYPIONATE [Concomitant]
     Active Substance: TESTOSTERONE CYPIONATE
  29. TRIAMCINOLONE [Concomitant]
     Active Substance: TRIAMCINOLONE
  30. VIAGRA [Concomitant]
     Active Substance: SILDENAFIL CITRATE
  31. VITAMIN D NOS [Concomitant]
     Active Substance: VITAMIN D NOS
  32. ZYRTEC [Concomitant]
     Active Substance: CETIRIZINE HYDROCHLORIDE

REACTIONS (5)
  - Chronic kidney disease [Not Recovered/Not Resolved]
  - Emotional distress [Not Recovered/Not Resolved]
  - Anhedonia [Not Recovered/Not Resolved]
  - Anxiety [Not Recovered/Not Resolved]
  - Pain [Not Recovered/Not Resolved]

NARRATIVE: CASE EVENT DATE: 20100101
